FAERS Safety Report 20697271 (Version 3)
Quarter: 2022Q2

REPORT INFORMATION
  Report Type: Spontaneous
  Country: CH (occurrence: CH)
  Receive Date: 20220411
  Receipt Date: 20220531
  Transmission Date: 20220721
  Serious: Yes (Death, Life-Threatening, Hospitalization, Other)
  Sender: FDA-Public Use
  Company Number: None

PATIENT
  Age: 67 Year
  Sex: Male

DRUGS (18)
  1. PIPERACILLIN SODIUM\TAZOBACTAM SODIUM [Suspect]
     Active Substance: PIPERACILLIN SODIUM\TAZOBACTAM SODIUM
     Indication: Septic shock
     Dosage: UNK
     Route: 042
     Dates: start: 20210915, end: 20210930
  2. FASENRA [Suspect]
     Active Substance: BENRALIZUMAB
     Indication: Drug reaction with eosinophilia and systemic symptoms
     Dosage: 30MG, IN TOTAL
     Route: 058
     Dates: start: 20211002, end: 20211002
  3. BORTEZOMIB [Suspect]
     Active Substance: BORTEZOMIB
     Indication: Plasma cell myeloma
     Dosage: 2.6.MG, IN TOTAL
     Route: 058
     Dates: start: 20210827, end: 20210827
  4. BORTEZOMIB [Suspect]
     Active Substance: BORTEZOMIB
     Dosage: 2.6 MG, IN TOTAL
     Route: 058
     Dates: start: 20210830, end: 20210830
  5. BORTEZOMIB [Suspect]
     Active Substance: BORTEZOMIB
     Dosage: 2.6 MG, IN TOTAL
     Route: 058
     Dates: start: 20210903, end: 20210903
  6. BORTEZOMIB [Suspect]
     Active Substance: BORTEZOMIB
     Dosage: 2.6 MG, IN TOTAL
     Route: 058
     Dates: start: 20210906, end: 20210906
  7. POMALIDOMIDE [Suspect]
     Active Substance: POMALIDOMIDE
     Indication: Plasma cell myeloma
     Dosage: 4 MG, DAILY
     Route: 048
     Dates: start: 20210909, end: 20210916
  8. FOLIC ACID [Concomitant]
     Active Substance: FOLIC ACID
     Dosage: 5 MG, 1X/DAY  (1-0-0)
  9. CALCIUM\CHOLECALCIFEROL [Concomitant]
     Active Substance: CALCIUM\CHOLECALCIFEROL
     Dosage: 2 DF, 500 MG /800 IU (2-0-0) 1X PER DAY
  10. ELIQUIS [Concomitant]
     Active Substance: APIXABAN
     Dosage: 2.5 MG, EVERY 12 HOURS 1-0-1 UNTIL THE END 30SEP2021
     Dates: end: 20210930
  11. SODIUM PICOSULFATE [Concomitant]
     Active Substance: SODIUM PICOSULFATE
     Dosage: 15 DROP, DAILY
  12. PALLADONE [Concomitant]
     Active Substance: HYDROMORPHONE HYDROCHLORIDE
     Dosage: 4 MG EVERY 12 HOURS 1-0-1
  13. VALTREX [Concomitant]
     Active Substance: VALACYCLOVIR HYDROCHLORIDE
     Dosage: 500 MG, MON, TUE, FRI
  14. NORADRENALINE [NOREPINEPHRINE BITARTRATE MONOHYDRATE] [Concomitant]
     Dosage: UNK
     Route: 041
  15. CORDARONE [Concomitant]
     Active Substance: AMIODARONE HYDROCHLORIDE
     Dosage: UNK
     Route: 041
  16. THIAMINE HYDROCHLORIDE [Concomitant]
     Active Substance: THIAMINE HYDROCHLORIDE
     Dosage: UNK
     Route: 041
  17. CILASTATIN SODIUM\IMIPENEM [Concomitant]
     Active Substance: CILASTATIN SODIUM\IMIPENEM
     Dosage: UNK
     Route: 041
  18. NOVALGIN (METAMIZOLE SODIUM) [Concomitant]
     Active Substance: METAMIZOLE SODIUM
     Dosage: UNK
     Route: 041

REACTIONS (17)
  - Toxic epidermal necrolysis [Fatal]
  - Gastrointestinal haemorrhage [Fatal]
  - Septic shock [Fatal]
  - Death [Fatal]
  - Shock haemorrhagic [Fatal]
  - Drug resistance [Unknown]
  - Hypofibrinogenaemia [Recovering/Resolving]
  - Thrombocytopenia [Recovering/Resolving]
  - Disseminated intravascular coagulation [Recovering/Resolving]
  - Drug reaction with eosinophilia and systemic symptoms [Recovering/Resolving]
  - Oxygen saturation decreased [Unknown]
  - Haemodynamic instability [Unknown]
  - Respiratory failure [Unknown]
  - Pneumonia [Unknown]
  - Intestinal ischaemia [Unknown]
  - C-reactive protein increased [Unknown]
  - Pyrexia [Unknown]

NARRATIVE: CASE EVENT DATE: 20210927
